FAERS Safety Report 5586369-3 (Version None)
Quarter: 2008Q1

REPORT INFORMATION
  Report Type: 
  Country: None (occurrence: None)
  Receive Date: 20080110
  Receipt Date: 20080107
  Transmission Date: 20080703
  Serious: Yes (Death)
  Sender: FDA-Public Use
  Company Number: PHBS2007BE19616

PATIENT
  Age: 57 Year
  Sex: Female

DRUGS (10)
  1. SANDOSTATIN [Suspect]
     Indication: IRRITABLE BOWEL SYNDROME
     Dosage: 0.1 MG/D
     Route: 058
     Dates: start: 20070402, end: 20070404
  2. NATRIUM BICARBONAT [Concomitant]
  3. ALLOPURINOL [Concomitant]
  4. DIAZEPAM [Concomitant]
  5. BISOPROLOL [Concomitant]
  6. EPOETIN BETA [Concomitant]
     Route: 058
  7. SERETIDE [Concomitant]
  8. SPIRIVA [Concomitant]
  9. LOPERAMIDE HCL [Concomitant]
     Dates: end: 20070402
  10. LOPERAMIDE HCL [Concomitant]
     Dates: end: 20070402

REACTIONS (2)
  - ELECTROLYTE IMBALANCE [None]
  - SUDDEN DEATH [None]
